FAERS Safety Report 22258277 (Version 2)
Quarter: 2024Q2

REPORT INFORMATION
  Report Type: Spontaneous
  Country: AU (occurrence: AU)
  Receive Date: 20230427
  Receipt Date: 20240430
  Transmission Date: 20240716
  Serious: Yes (Other)
  Sender: FDA-Public Use
  Company Number: None

PATIENT
  Sex: Male

DRUGS (18)
  1. ALEMTUZUMAB [Suspect]
     Active Substance: ALEMTUZUMAB
     Indication: T-cell prolymphocytic leukaemia
     Dosage: UNK
     Route: 065
     Dates: start: 2014
  2. PREDNISONE [Suspect]
     Active Substance: PREDNISONE
     Indication: T-cell prolymphocytic leukaemia
     Dosage: CYCLE 6
     Route: 065
     Dates: start: 2016
  3. PREDNISONE [Suspect]
     Active Substance: PREDNISONE
     Indication: Mantle cell lymphoma
  4. VINCRISTINE SULFATE [Suspect]
     Active Substance: VINCRISTINE SULFATE
     Indication: T-cell prolymphocytic leukaemia
     Dosage: CYCLE 6
     Route: 065
     Dates: start: 2016
  5. VINCRISTINE SULFATE [Suspect]
     Active Substance: VINCRISTINE SULFATE
     Indication: Mantle cell lymphoma
  6. DEXAMETHASONE [Suspect]
     Active Substance: DEXAMETHASONE
     Indication: T-cell prolymphocytic leukaemia
     Dosage: CYCLE 6
     Route: 065
     Dates: start: 2016
  7. DEXAMETHASONE [Suspect]
     Active Substance: DEXAMETHASONE
     Indication: Mantle cell lymphoma
  8. CYTARABINE [Suspect]
     Active Substance: CYTARABINE
     Indication: T-cell prolymphocytic leukaemia
     Dosage: UNK
     Route: 065
     Dates: start: 2016
  9. CYTARABINE [Suspect]
     Active Substance: CYTARABINE
     Indication: Mantle cell lymphoma
  10. CARBOPLATIN [Suspect]
     Active Substance: CARBOPLATIN
     Indication: T-cell prolymphocytic leukaemia
     Dosage: UNK
     Route: 065
     Dates: start: 2016
  11. CYCLOPHOSPHAMIDE [Suspect]
     Active Substance: CYCLOPHOSPHAMIDE
     Indication: T-cell prolymphocytic leukaemia
     Dosage: UNK
     Route: 065
     Dates: start: 2016
  12. CYCLOPHOSPHAMIDE [Suspect]
     Active Substance: CYCLOPHOSPHAMIDE
     Indication: Mantle cell lymphoma
  13. RITUXIMAB [Suspect]
     Active Substance: RITUXIMAB
     Indication: T-cell prolymphocytic leukaemia
     Dosage: CYCLE 6
     Route: 065
     Dates: start: 2016
  14. RITUXIMAB [Suspect]
     Active Substance: RITUXIMAB
     Indication: Mantle cell lymphoma
  15. DOXORUBICIN HYDROCHLORIDE [Suspect]
     Active Substance: DOXORUBICIN HYDROCHLORIDE
     Indication: T-cell prolymphocytic leukaemia
     Dosage: CYCLE 6 IN 2016
     Route: 065
     Dates: start: 2016
  16. DOXORUBICIN HYDROCHLORIDE [Suspect]
     Active Substance: DOXORUBICIN HYDROCHLORIDE
     Indication: Mantle cell lymphoma
  17. IBRUTINIB [Suspect]
     Active Substance: IBRUTINIB
     Indication: T-cell prolymphocytic leukaemia
     Dosage: CYCLE 6
     Route: 065
  18. IBRUTINIB [Suspect]
     Active Substance: IBRUTINIB
     Indication: Leukaemia recurrent

REACTIONS (6)
  - Anaemia [Unknown]
  - Leukaemia recurrent [Unknown]
  - Mantle cell lymphoma [Recovered/Resolved]
  - Skin lesion [Recovered/Resolved]
  - T-cell prolymphocytic leukaemia [Recovered/Resolved]
  - Therapy partial responder [Unknown]
